FAERS Safety Report 8518670-5 (Version None)
Quarter: 2012Q3

REPORT INFORMATION
  Report Type: 
  Country: None (occurrence: None)
  Receive Date: 20120718
  Receipt Date: 20110705
  Transmission Date: 20120928
  Serious: Yes (Hospitalization)
  Sender: FDA-Public Use
  Company Number: US-BRISTOL-MYERS SQUIBB COMPANY-15801103

PATIENT
  Sex: Male

DRUGS (1)
  1. COUMADIN [Suspect]
     Indication: DEEP VEIN THROMBOSIS
     Dosage: 1DF= EITHER TAKE 2.5MG, 5MG OR 7.5MG DAILY. THERAPY OF TOTAL 4 MONTHS.
     Dates: start: 20101201

REACTIONS (5)
  - INTERNATIONAL NORMALISED RATIO FLUCTUATION [None]
  - GASTRIC HAEMORRHAGE [None]
  - FATIGUE [None]
  - LETHARGY [None]
  - DRUG INEFFECTIVE [None]
